FAERS Safety Report 9836737 (Version 2)
Quarter: 2014Q1

REPORT INFORMATION
  Report Type: Report from Study
  Country: BD (occurrence: BD)
  Receive Date: 20140123
  Receipt Date: 20140228
  Transmission Date: 20141002
  Serious: Yes (Death, Hospitalization, Other)
  Sender: FDA-Public Use
  Company Number: PHHY2014BD007139

PATIENT
  Age: 62 Year
  Sex: Female

DRUGS (2)
  1. ACLASTA [Suspect]
     Indication: OSTEOPOROSIS
     Dosage: ONCE YEARLY
     Route: 042
     Dates: start: 20110213
  2. ACLASTA [Suspect]
     Dosage: ONCE YEARLY
     Route: 042
     Dates: start: 20130101

REACTIONS (7)
  - Cerebrovascular accident [Fatal]
  - Pneumonia [Fatal]
  - Renal disorder [Not Recovered/Not Resolved]
  - Decreased appetite [Unknown]
  - Nasopharyngitis [Unknown]
  - Knee deformity [Not Recovered/Not Resolved]
  - Hypertension [Not Recovered/Not Resolved]
